FAERS Safety Report 13782422 (Version 1)
Quarter: 2017Q3

REPORT INFORMATION
  Report Type: Spontaneous
  Country: US (occurrence: US)
  Receive Date: 20170724
  Receipt Date: 20170724
  Transmission Date: 20171127
  Serious: Yes (Other)
  Sender: FDA-Public Use
  Company Number: US-PRINSTON PHARMACEUTICAL INC.-2016PRN00176

PATIENT
  Age: 81 Year
  Sex: Female
  Weight: 81.63 kg

DRUGS (2)
  1. PRAVASTATIN. [Suspect]
     Active Substance: PRAVASTATIN
     Indication: BLOOD CHOLESTEROL INCREASED
     Dosage: 20 MG, 1X/DAY
     Dates: start: 20160129
  2. LOSARTAN POTASSIUM. [Suspect]
     Active Substance: LOSARTAN POTASSIUM
     Indication: HEART VALVE STENOSIS
     Dosage: 50 MG, 1X/DAY
     Route: 048
     Dates: start: 201606, end: 20160711

REACTIONS (14)
  - Chest pain [Recovered/Resolved]
  - Aphonia [Not Recovered/Not Resolved]
  - Arthralgia [None]
  - Nocturia [Not Recovered/Not Resolved]
  - Fatigue [Recovering/Resolving]
  - Dizziness [Recovering/Resolving]
  - Hypopnoea [Recovering/Resolving]
  - Myalgia [Recovering/Resolving]
  - Eye pain [Recovered/Resolved]
  - Hallucination, visual [Recovered/Resolved]
  - Diplopia [Recovered/Resolved]
  - Poor quality sleep [Recovering/Resolving]
  - Product substitution issue [Not Recovered/Not Resolved]
  - Dyspnoea [Recovering/Resolving]

NARRATIVE: CASE EVENT DATE: 201606
